FAERS Safety Report 5211852-X (Version None)
Quarter: 2007Q1

REPORT INFORMATION
  Report Type: 
  Country: None (occurrence: None)
  Receive Date: 20070118
  Receipt Date: 20070112
  Transmission Date: 20070707
  Serious: Yes (Death, Life-Threatening, Hospitalization, Other)
  Sender: FDA-Public Use
  Company Number: GB-BAYER-200611518BNE

PATIENT
  Age: 61 Year
  Sex: Male

DRUGS (15)
  1. SORAFENIB [Suspect]
     Indication: NON-SMALL CELL LUNG CANCER
     Dosage: TOTAL DAILY DOSE: 800 MG
     Route: 048
     Dates: start: 20061103, end: 20061201
  2. CARBOPLATIN [Suspect]
     Indication: NON-SMALL CELL LUNG CANCER
     Route: 042
     Dates: start: 20061123, end: 20061123
  3. PACLITAXEL [Suspect]
     Indication: NON-SMALL CELL LUNG CANCER
     Route: 042
     Dates: start: 20061123, end: 20061123
  4. PARACETAMOL [Concomitant]
     Indication: ANALGESIC EFFECT
     Route: 048
  5. TRAMADOL HCL [Concomitant]
     Indication: ANALGESIC EFFECT
     Route: 048
  6. ATENOLOL [Concomitant]
     Indication: BLOOD PRESSURE INCREASED
     Route: 048
     Dates: start: 20061101
  7. OMEPRAZOLE [Concomitant]
     Indication: ANTACID THERAPY
     Route: 048
     Dates: start: 20060101
  8. ONDANSETRON [Concomitant]
     Indication: ANTIEMETIC SUPPORTIVE CARE
     Route: 048
     Dates: start: 20061123, end: 20061125
  9. ONDANSETRON [Concomitant]
     Route: 048
     Dates: start: 20061103, end: 20061105
  10. METOCLOPRAMIDE [Concomitant]
     Indication: ANTIEMETIC SUPPORTIVE CARE
     Route: 048
     Dates: start: 20061123, end: 20061130
  11. METOCLOPRAMIDE [Concomitant]
     Route: 048
     Dates: start: 20061103, end: 20061108
  12. DEXAMETHASONE [Concomitant]
     Indication: ANTIEMETIC SUPPORTIVE CARE
     Route: 048
     Dates: start: 20061122, end: 20061123
  13. DEXAMETHASONE [Concomitant]
     Route: 048
     Dates: start: 20061101, end: 20061102
  14. DEXAMETHASONE [Concomitant]
     Route: 048
     Dates: start: 20060101
  15. DEXAMETHASONE [Concomitant]
     Route: 048
     Dates: start: 20061103, end: 20061106

REACTIONS (9)
  - ABDOMINAL RIGIDITY [None]
  - CARDIAC ARREST [None]
  - CONSTIPATION [None]
  - DEATH [None]
  - DEEP VEIN THROMBOSIS [None]
  - DYSPNOEA [None]
  - LUNG ADENOCARCINOMA [None]
  - NEUTROPENIA [None]
  - PULMONARY EMBOLISM [None]
